FAERS Safety Report 8820408 (Version 3)
Quarter: 2012Q4

REPORT INFORMATION
  Report Type: 
  Country: FR (occurrence: FR)
  Receive Date: 20121002
  Receipt Date: 20121025
  Transmission Date: 20130627
  Serious: Yes (Hospitalization, Other)
  Sender: FDA-Public Use
  Company Number: FR-009507513-1209FRA010657

PATIENT
  Age: 38 Year
  Sex: Male
  Weight: 80 kg

DRUGS (3)
  1. VICTRELIS [Suspect]
     Indication: HEPATITIS C
     Dosage: 12 DF, qd
     Route: 048
     Dates: start: 20120610, end: 20121002
  2. PEGASYS [Suspect]
     Indication: HEPATITIS C
     Dosage: 180 Microgram, Unknown
     Route: 058
     Dates: start: 20120507
  3. COPEGUS [Suspect]
     Indication: HEPATITIS C
     Dosage: 1 g, Unknown
     Route: 048
     Dates: start: 20120507

REACTIONS (2)
  - Dermatitis [Not Recovered/Not Resolved]
  - Pruritus [Not Recovered/Not Resolved]
